FAERS Safety Report 5425067-3 (Version None)
Quarter: 2007Q3

REPORT INFORMATION
  Report Type: 
  Country: None (occurrence: None)
  Receive Date: 20070824
  Receipt Date: 20070814
  Transmission Date: 20080115
  Serious: Yes (Death)
  Sender: FDA-Public Use
  Company Number: US-JNJFOC-20060803346

PATIENT
  Sex: Male
  Weight: 107.05 kg

DRUGS (8)
  1. DURAGESIC-100 [Suspect]
     Route: 062
  2. DURAGESIC-100 [Suspect]
     Indication: BACK PAIN
     Route: 062
  3. MIDRIN [Concomitant]
  4. ATIVAN [Concomitant]
  5. PREDNISONE TAB [Concomitant]
  6. GABAPENTIN [Concomitant]
  7. ELAVIL [Concomitant]
  8. VICODIN [Concomitant]

REACTIONS (2)
  - CARDIO-RESPIRATORY ARREST [None]
  - CONGESTIVE CARDIOMYOPATHY [None]
